FAERS Safety Report 11237842 (Version 1)
Quarter: 2015Q3

REPORT INFORMATION
  Report Type: Spontaneous
  Country: US (occurrence: US)
  Receive Date: 20150703
  Receipt Date: 20150703
  Transmission Date: 20151125
  Serious: No
  Sender: FDA-Public Use
  Company Number: US-B.I. PHARMACEUTICALS,INC./RIDGEFIELD-2015-BI-33573BP

PATIENT
  Sex: Female
  Weight: 86 kg

DRUGS (2)
  1. MIRAPEX [Suspect]
     Active Substance: PRAMIPEXOLE DIHYDROCHLORIDE
     Indication: RESTLESS LEGS SYNDROME
     Dosage: 1 MG
     Route: 048
     Dates: start: 2007, end: 201505
  2. ZOLOFT [Concomitant]
     Active Substance: SERTRALINE HYDROCHLORIDE
     Indication: DEPRESSION
     Dosage: 50 MG
     Route: 048
     Dates: start: 2013

REACTIONS (10)
  - Night sweats [Not Recovered/Not Resolved]
  - Depression [Not Recovered/Not Resolved]
  - Weight increased [Not Recovered/Not Resolved]
  - Insomnia [Not Recovered/Not Resolved]
  - Vomiting [Recovered/Resolved]
  - Pain [Not Recovered/Not Resolved]
  - Pruritus [Recovered/Resolved]
  - Fatigue [Not Recovered/Not Resolved]
  - Tremor [Not Recovered/Not Resolved]
  - Drug withdrawal syndrome [Not Recovered/Not Resolved]

NARRATIVE: CASE EVENT DATE: 2007
